FAERS Safety Report 6122117-6 (Version None)
Quarter: 2009Q1

REPORT INFORMATION
  Report Type: 
  Country: None (occurrence: None)
  Receive Date: 20090313
  Receipt Date: 20090313
  Transmission Date: 20090719
  Serious: Yes (Hospitalization)
  Sender: FDA-Public Use
  Company Number: None

PATIENT
  Age: 67 Year
  Sex: Male
  Weight: 104.2 kg

DRUGS (9)
  1. GLIMEPIRIDE [Suspect]
     Indication: DIABETES MELLITUS
     Dosage: TITRATED DOSE BETWEEN 1 MG AND 6 MG - ORAL
     Route: 048
     Dates: start: 20080320, end: 20080521
  2. GLIMEPIRIDE [Suspect]
     Indication: OVERWEIGHT
     Dosage: TITRATED DOSE BETWEEN 1 MG AND 6 MG - ORAL
     Route: 048
     Dates: start: 20080320, end: 20080521
  3. METFORMIN [Concomitant]
  4. SIMVASTATIN [Concomitant]
  5. ENALAPRIL [Concomitant]
  6. METOPROLOL TARTRATE [Concomitant]
  7. ACETYLSALICYLIC ACID [Concomitant]
  8. FUROSEMIDE [Concomitant]
  9. NITROGLYCERIN [Concomitant]

REACTIONS (5)
  - COLD SWEAT [None]
  - ESSENTIAL HYPERTENSION [None]
  - NAUSEA [None]
  - NYSTAGMUS [None]
  - VISION BLURRED [None]
